FAERS Safety Report 10199048 (Version 2)
Quarter: 2014Q2

REPORT INFORMATION
  Report Type: Spontaneous
  Country: JP (occurrence: JP)
  Receive Date: 20140527
  Receipt Date: 20140616
  Transmission Date: 20141212
  Serious: Yes (Other)
  Sender: FDA-Public Use
  Company Number: JP-BAYER-2014-076382

PATIENT
  Sex: 0

DRUGS (1)
  1. BAYER ASPIRIN [Suspect]
     Indication: SUICIDE ATTEMPT
     Dosage: 60 DF, ONCE
     Route: 048

REACTIONS (2)
  - Intentional overdose [None]
  - Suicide attempt [None]
